FAERS Safety Report 12834892 (Version 1)
Quarter: 2016Q4

REPORT INFORMATION
  Report Type: Report from Study
  Country: SK (occurrence: SK)
  Receive Date: 20161010
  Receipt Date: 20161010
  Transmission Date: 20170207
  Serious: Yes (Death, Hospitalization)
  Sender: FDA-Public Use
  Company Number: SK-B.I. PHARMACEUTICALS,INC./RIDGEFIELD-2015-BI-70627BI

PATIENT
  Age: 65 Year
  Sex: Male
  Weight: 59 kg

DRUGS (3)
  1. BLINDED TIOTROPIUM BROMIDE+OLODATEROL [Suspect]
     Active Substance: OLODATEROL HYDROCHLORIDE\TIOTROPIUM BROMIDE MONOHYDRATE
     Indication: CHRONIC OBSTRUCTIVE PULMONARY DISEASE
     Route: 055
     Dates: start: 20151125, end: 20160109
  2. ACIDUM FOLICUM [Concomitant]
     Active Substance: FOLIC ACID
     Indication: ANAEMIA
     Route: 048
     Dates: start: 20151203
  3. PERINDORPIL [Concomitant]
     Indication: HYPERTENSION
     Route: 048
     Dates: start: 2013

REACTIONS (4)
  - Acute prerenal failure [Recovered/Resolved]
  - Upper respiratory tract infection [Recovered/Resolved]
  - Hypovolaemic shock [Recovered/Resolved]
  - Subdural haemorrhage [Fatal]

NARRATIVE: CASE EVENT DATE: 20151207
